FAERS Safety Report 13727061 (Version 1)
Quarter: 2017Q3

REPORT INFORMATION
  Report Type: Spontaneous
  Country: US (occurrence: US)
  Receive Date: 20170707
  Receipt Date: 20170707
  Transmission Date: 20171127
  Serious: No
  Sender: FDA-Public Use
  Company Number: US-EPIC PHARMA LLC-2016EPC00018

PATIENT
  Age: 72 Year
  Sex: Female
  Weight: 79.37 kg

DRUGS (5)
  1. MEPERIDINE HYDROCHLORIDE. [Suspect]
     Active Substance: MEPERIDINE HYDROCHLORIDE
     Dosage: UNK
     Dates: start: 201609
  2. MEPERIDINE HYDROCHLORIDE. [Suspect]
     Active Substance: MEPERIDINE HYDROCHLORIDE
     Dosage: 0.5-1 TABLETS, 4X/DAY
     Route: 048
     Dates: start: 2016, end: 201609
  3. NAPROXEN. [Concomitant]
     Active Substance: NAPROXEN
     Dosage: 1 TABLETS, 3X/DAY
     Route: 048
  4. CLONIDINE. [Concomitant]
     Active Substance: CLONIDINE
     Dosage: 1 TABLETS, 3X/DAY
  5. WARFARIN [Concomitant]
     Active Substance: WARFARIN
     Dosage: 2.5 TABLETS, 1X/DAY

REACTIONS (3)
  - Tongue discomfort [Not Recovered/Not Resolved]
  - Drug ineffective [Not Recovered/Not Resolved]
  - Pain [Not Recovered/Not Resolved]

NARRATIVE: CASE EVENT DATE: 2016
